FAERS Safety Report 7956098-7 (Version None)
Quarter: 2011Q4

REPORT INFORMATION
  Report Type: 
  Country: None (occurrence: None)
  Receive Date: 20111205
  Receipt Date: 20111129
  Transmission Date: 20120403
  Serious: Yes (Other)
  Sender: FDA-Public Use
  Company Number: US-PFIZER INC-2011292217

PATIENT
  Sex: Female

DRUGS (1)
  1. CHANTIX [Suspect]
     Dosage: UNK
     Dates: start: 20090201

REACTIONS (6)
  - PSYCHOTIC DISORDER [None]
  - DEPRESSION [None]
  - CONFUSIONAL STATE [None]
  - MENTAL DISORDER [None]
  - AMNESIA [None]
  - ANXIETY [None]
